FAERS Safety Report 10369032 (Version 1)
Quarter: 2014Q3

REPORT INFORMATION
  Report Type: Spontaneous
  Country: DE (occurrence: DE)
  Receive Date: 20140807
  Receipt Date: 20140807
  Transmission Date: 20150326
  Serious: Yes (Hospitalization, Other)
  Sender: FDA-Public Use
  Company Number: DE-BAYER-2014-117624

PATIENT
  Age: 71 Year
  Sex: Male

DRUGS (3)
  1. XARELTO [Suspect]
     Active Substance: RIVAROXABAN
     Dosage: 15 MG, UNK
  2. XARELTO [Interacting]
     Active Substance: RIVAROXABAN
     Dosage: 10 MG, UNK
  3. ASPIRIN. [Interacting]
     Active Substance: ASPIRIN
     Dosage: UNK

REACTIONS (3)
  - Intestinal haemorrhage [None]
  - Myocardial infarction [None]
  - Drug interaction [None]
